FAERS Safety Report 8895800 (Version 2)
Quarter: 2012Q4

REPORT INFORMATION
  Report Type: 
  Country: US (occurrence: US)
  Receive Date: 20121107
  Receipt Date: 20121227
  Transmission Date: 20130627
  Serious: Yes (Disabling)
  Sender: FDA-Public Use
  Company Number: US-ASTRAZENECA-1997AU01367

PATIENT
  Age: 75 Year
  Sex: Male
  Weight: 99.8 kg

DRUGS (28)
  1. TOPROL XL [Suspect]
     Indication: MYOCARDIAL INFARCTION
     Route: 048
     Dates: start: 19960912, end: 19970311
  2. TOPROL XL [Suspect]
     Indication: CORONARY ARTERIAL STENT INSERTION
     Route: 048
     Dates: start: 19960912, end: 19970311
  3. TOPROL XL [Suspect]
     Indication: BLOOD CHOLESTEROL INCREASED
     Route: 048
     Dates: start: 19960912, end: 19970311
  4. TOPROL XL [Suspect]
     Indication: HYPERTENSION
     Route: 048
     Dates: start: 19960912, end: 19970311
  5. TOPROL XL [Suspect]
     Indication: MYOCARDIAL INFARCTION
     Route: 048
     Dates: start: 19960912, end: 19970311
  6. TOPROL XL [Suspect]
     Indication: MYOCARDIAL INFARCTION
     Route: 048
     Dates: start: 19970312, end: 19970326
  7. TOPROL XL [Suspect]
     Indication: CORONARY ARTERIAL STENT INSERTION
     Route: 048
     Dates: start: 19970312, end: 19970326
  8. TOPROL XL [Suspect]
     Indication: BLOOD CHOLESTEROL INCREASED
     Route: 048
     Dates: start: 19970312, end: 19970326
  9. TOPROL XL [Suspect]
     Indication: HYPERTENSION
     Route: 048
     Dates: start: 19970312, end: 19970326
  10. TOPROL XL [Suspect]
     Indication: MYOCARDIAL INFARCTION
     Route: 048
     Dates: start: 19970312, end: 19970326
  11. TOPROL XL [Suspect]
     Indication: MYOCARDIAL INFARCTION
     Route: 048
     Dates: start: 19970327, end: 19970413
  12. TOPROL XL [Suspect]
     Indication: CORONARY ARTERIAL STENT INSERTION
     Route: 048
     Dates: start: 19970327, end: 19970413
  13. TOPROL XL [Suspect]
     Indication: BLOOD CHOLESTEROL INCREASED
     Route: 048
     Dates: start: 19970327, end: 19970413
  14. TOPROL XL [Suspect]
     Indication: HYPERTENSION
     Route: 048
     Dates: start: 19970327, end: 19970413
  15. TOPROL XL [Suspect]
     Indication: MYOCARDIAL INFARCTION
     Route: 048
     Dates: start: 19970327, end: 19970413
  16. TOPROL XL [Suspect]
     Indication: MYOCARDIAL INFARCTION
     Route: 048
     Dates: start: 2000
  17. TOPROL XL [Suspect]
     Indication: CORONARY ARTERIAL STENT INSERTION
     Route: 048
     Dates: start: 2000
  18. TOPROL XL [Suspect]
     Indication: BLOOD CHOLESTEROL INCREASED
     Route: 048
     Dates: start: 2000
  19. TOPROL XL [Suspect]
     Indication: HYPERTENSION
     Route: 048
     Dates: start: 2000
  20. TOPROL XL [Suspect]
     Indication: MYOCARDIAL INFARCTION
     Route: 048
     Dates: start: 2000
  21. ASPIRIN [Concomitant]
     Indication: CARDIAC DISORDER
  22. LOPRESSOR [Concomitant]
     Indication: MYOCARDIAL INFARCTION
     Route: 048
     Dates: start: 19960715, end: 19960912
  23. MEVACOR [Concomitant]
     Indication: HYPERCHOLESTEROLAEMIA
  24. VITAMIN E [Concomitant]
  25. CLOPIDOGREL [Concomitant]
     Indication: CORONARY ARTERIAL STENT INSERTION
     Route: 048
  26. SIMVASTATIN [Concomitant]
     Indication: BLOOD CHOLESTEROL INCREASED
     Route: 048
  27. VITAMIN D [Concomitant]
     Route: 048
  28. SAW PALMETTO COMPLEX [Concomitant]
     Indication: URINARY TRACT DISORDER
     Route: 048

REACTIONS (4)
  - Dental caries [Not Recovered/Not Resolved]
  - Painful erection [Not Recovered/Not Resolved]
  - Dry mouth [Unknown]
  - Off label use [Unknown]
